FAERS Safety Report 20703532 (Version 2)
Quarter: 2022Q3

REPORT INFORMATION
  Report Type: Spontaneous
  Country: US (occurrence: US)
  Receive Date: 20220413
  Receipt Date: 20220908
  Transmission Date: 20221026
  Serious: No
  Sender: FDA-Public Use
  Company Number: US-BIOGEN-2022BI01096591

PATIENT
  Sex: Male

DRUGS (20)
  1. VUMERITY [Suspect]
     Active Substance: DIROXIMEL FUMARATE
     Indication: Multiple sclerosis
     Dosage: TAKE ONE CAPSULE (231MG) BY MOUTH TWICE DAILY FOR THE FIRST 7 DAYS
     Route: 050
  2. VUMERITY [Suspect]
     Active Substance: DIROXIMEL FUMARATE
     Dosage: THEREAFTER TAKE TWO CAPSULES (462MG) BY MOUTH TWICE DAILY.
     Route: 050
  3. VUMERITY [Suspect]
     Active Substance: DIROXIMEL FUMARATE
     Route: 050
     Dates: start: 20220201
  4. VUMERITY [Suspect]
     Active Substance: DIROXIMEL FUMARATE
     Dosage: MAINTENANCE DOSE
     Route: 050
     Dates: start: 20220228
  5. VUMERITY [Suspect]
     Active Substance: DIROXIMEL FUMARATE
     Route: 050
     Dates: start: 20220128
  6. VUMERITY [Suspect]
     Active Substance: DIROXIMEL FUMARATE
     Route: 050
     Dates: start: 202202
  7. VUMERITY [Suspect]
     Active Substance: DIROXIMEL FUMARATE
     Route: 050
  8. VUMERITY [Suspect]
     Active Substance: DIROXIMEL FUMARATE
     Route: 050
  9. VUMERITY [Suspect]
     Active Substance: DIROXIMEL FUMARATE
     Route: 050
  10. MIRALAX [Concomitant]
     Active Substance: POLYETHYLENE GLYCOL 3350
     Route: 050
  11. ASPIRIN [Concomitant]
     Active Substance: ASPIRIN
     Route: 050
  12. AMLODIPINE BESYLATE [Concomitant]
     Active Substance: AMLODIPINE BESYLATE
     Route: 050
  13. LISINOPRIL [Concomitant]
     Active Substance: LISINOPRIL
     Route: 050
  14. GLIMEPIRIDE [Concomitant]
     Active Substance: GLIMEPIRIDE
     Route: 050
  15. METFORMIN HYDROCHLORIDE [Concomitant]
     Active Substance: METFORMIN HYDROCHLORIDE
     Route: 050
  16. TRADJENTA [Concomitant]
     Active Substance: LINAGLIPTIN
     Route: 050
  17. PRAVASTATIN SODIUM [Concomitant]
     Active Substance: PRAVASTATIN SODIUM
     Route: 050
  18. ELIQUIS [Concomitant]
     Active Substance: APIXABAN
     Route: 050
  19. AMIODARONE HYDROCHLORIDE [Concomitant]
     Active Substance: AMIODARONE HYDROCHLORIDE
     Route: 050
  20. Neuriva [Concomitant]
     Route: 050

REACTIONS (6)
  - Intentional underdose [Not Recovered/Not Resolved]
  - Headache [Not Recovered/Not Resolved]
  - Fatigue [Unknown]
  - Dizziness [Recovered/Resolved]
  - Dry mouth [Unknown]
  - Gastrointestinal disorder [Unknown]
